FAERS Safety Report 6026644-1 (Version None)
Quarter: 2008Q4

REPORT INFORMATION
  Report Type: 
  Country: None (occurrence: None)
  Receive Date: 20081231
  Receipt Date: 20081218
  Transmission Date: 20090506
  Serious: No
  Sender: FDA-Public Use
  Company Number: US024917

PATIENT
  Age: 67 Year
  Sex: Male
  Weight: 61.6892 kg

DRUGS (3)
  1. FENTORA [Suspect]
     Indication: PAIN
     Dosage: 800 UG BUCCAL
     Route: 002
     Dates: start: 20080801
  2. FENTORA [Suspect]
     Indication: PAIN
     Dosage: UG 3-6 HRS PRN BUCCAL
     Route: 002
     Dates: start: 20071001
  3. CODEINE SUL TAB [Concomitant]

REACTIONS (2)
  - DRUG PRESCRIBING ERROR [None]
  - DRUG TOLERANCE [None]
